FAERS Safety Report 8848016 (Version 10)
Quarter: 2013Q2

REPORT INFORMATION
  Report Type: Report from Study
  Country: CA (occurrence: CA)
  Receive Date: 20121018
  Receipt Date: 20130621
  Transmission Date: 20140414
  Serious: Yes (Other)
  Sender: FDA-Public Use
  Company Number: PHHY2012CA092955

PATIENT
  Age: 65 Year
  Sex: Female

DRUGS (5)
  1. ZOMETA [Suspect]
     Indication: BREAST CANCER METASTATIC
     Dosage: 3 MG, EVERY 4 WEEKS
     Route: 042
     Dates: start: 20120913
  2. ZOMETA [Suspect]
     Dosage: 4 MG, EVERY 4 WEEKS
     Route: 042
  3. ZOMETA [Suspect]
     Dosage: 3.5 MG, EVERY 4 WEEKS
     Route: 042
  4. ZOMETA [Suspect]
     Dosage: 4 MG, EVERY 4 WEEKS
     Route: 042
  5. ZOMETA [Suspect]
     Dosage: 3.3 MG, EVERY 4 WEEKS
     Route: 042

REACTIONS (14)
  - Hemiparesis [Unknown]
  - Fall [Unknown]
  - Sinusitis [Unknown]
  - Hepatic function abnormal [Unknown]
  - Blood calcium increased [Unknown]
  - Loose tooth [Unknown]
  - Poor venous access [Unknown]
  - Body temperature decreased [Unknown]
  - Creatinine renal clearance decreased [Unknown]
  - Blood pressure increased [Unknown]
  - Back pain [Unknown]
  - Malaise [Unknown]
  - Vomiting [Unknown]
  - Nausea [Unknown]
